FAERS Safety Report 24696876 (Version 2)
Quarter: 2024Q4

REPORT INFORMATION
  Report Type: Spontaneous
  Country: US (occurrence: US)
  Receive Date: 20241204
  Receipt Date: 20241210
  Transmission Date: 20250115
  Serious: No
  Sender: Haleon PLC
  Company Number: US-HALEON-2212929

PATIENT
  Age: 73 Year
  Sex: Female
  Weight: 63.5 kg

DRUGS (1)
  1. NEXIUM 24HR [Suspect]
     Active Substance: ESOMEPRAZOLE MAGNESIUM
     Indication: Product used for unknown indication
     Dates: start: 20241111, end: 20241125

REACTIONS (4)
  - Coating in mouth [Not Recovered/Not Resolved]
  - Tongue coated [Not Recovered/Not Resolved]
  - Tooth disorder [Not Recovered/Not Resolved]
  - Product use issue [Unknown]
